FAERS Safety Report 9896931 (Version 3)
Quarter: 2014Q2

REPORT INFORMATION
  Report Type: Report from Study
  Country: CO (occurrence: CO)
  Receive Date: 20140214
  Receipt Date: 20140416
  Transmission Date: 20141212
  Serious: Yes (Other)
  Sender: FDA-Public Use
  Company Number: CO-ROCHE-1349136

PATIENT
  Age: 68 Year
  Sex: Female
  Weight: 73 kg

DRUGS (1)
  1. LUCENTIS [Suspect]
     Indication: EYE HAEMORRHAGE
     Dosage: DOSE 1 DF
     Route: 050
     Dates: start: 20121101

REACTIONS (3)
  - Eye haemorrhage [Unknown]
  - Visual acuity reduced [Unknown]
  - Lacrimation increased [Unknown]
